FAERS Safety Report 4559312-3 (Version None)
Quarter: 2005Q1

REPORT INFORMATION
  Report Type: 
  Country: None (occurrence: None)
  Receive Date: 20050124
  Receipt Date: 20050113
  Transmission Date: 20050727
  Serious: Yes (Other)
  Sender: FDA-Public Use
  Company Number: SE-JNJFOC-20050103500

PATIENT
  Age: 14 Year
  Sex: Male

DRUGS (3)
  1. CONCERTA [Suspect]
     Route: 049
  2. CONCERTA [Suspect]
     Route: 049
  3. CONCERTA [Suspect]
     Indication: ATTENTION DEFICIT/HYPERACTIVITY DISORDER
     Route: 049

REACTIONS (1)
  - PERSONALITY DISORDER [None]
